FAERS Safety Report 24254886 (Version 2)
Quarter: 2024Q3

REPORT INFORMATION
  Report Type: Report from Study
  Country: US (occurrence: None)
  Receive Date: 20240827
  Receipt Date: 20240913
  Transmission Date: 20241016
  Serious: Yes (Death, Hospitalization, Disabling, Other)
  Sender: ASTRAZENECA
  Company Number: 2024A192502

PATIENT
  Age: 30449 Day
  Sex: Female
  Weight: 66.7 kg

DRUGS (2)
  1. TAGRISSO [Suspect]
     Active Substance: OSIMERTINIB
     Indication: Lung neoplasm malignant
     Dosage: 80.0MG UNKNOWN
     Route: 048
     Dates: start: 20240119, end: 20240219
  2. TAGRISSO [Suspect]
     Active Substance: OSIMERTINIB
     Indication: Lung neoplasm malignant
     Dosage: 40.0MG UNKNOWN
     Route: 048
     Dates: start: 20240219, end: 20240314

REACTIONS (9)
  - Death [Fatal]
  - Hypokinesia [Unknown]
  - Autoimmune disorder [Unknown]
  - Myositis [Unknown]
  - Autonomic failure syndrome [Unknown]
  - Pain [Unknown]
  - Osteolysis [Unknown]
  - Paraesthesia [Unknown]
  - Myositis [Unknown]

NARRATIVE: CASE EVENT DATE: 20240306
